FAERS Safety Report 11197886 (Version 1)
Quarter: 2015Q2

REPORT INFORMATION
  Report Type: Spontaneous
  Country: US (occurrence: US)
  Receive Date: 20150617
  Receipt Date: 20150617
  Transmission Date: 20150821
  Serious: Yes (Hospitalization)
  Sender: FDA-Public Use
  Company Number: US-TAKEDA-2015MPI000602

PATIENT
  Age: 78 Year
  Sex: Female
  Weight: 58 kg

DRUGS (4)
  1. VELCADE [Suspect]
     Active Substance: BORTEZOMIB
     Dosage: UNK UNK, 2/WEEK
     Route: 065
     Dates: start: 20150201
  2. VELCADE [Suspect]
     Active Substance: BORTEZOMIB
     Indication: PLASMA CELL MYELOMA
     Dosage: UNK UNK, 2/WEEK
     Route: 065
     Dates: start: 20150126
  3. VELCADE [Suspect]
     Active Substance: BORTEZOMIB
     Dosage: UNK UNK, 2/WEEK
     Route: 065
     Dates: start: 20150129
  4. VELCADE [Suspect]
     Active Substance: BORTEZOMIB
     Dosage: UNK UNK, 2/WEEK
     Route: 065
     Dates: start: 20150205

REACTIONS (5)
  - Abdominal pain upper [Unknown]
  - Vomiting [Unknown]
  - Gastritis [Unknown]
  - Dizziness [Unknown]
  - Diarrhoea [Unknown]

NARRATIVE: CASE EVENT DATE: 20150205
